FAERS Safety Report 7644503-5 (Version None)
Quarter: 2011Q3

REPORT INFORMATION
  Report Type: 
  Country: None (occurrence: None)
  Receive Date: 20110729
  Receipt Date: 20110721
  Transmission Date: 20111222
  Serious: Yes (Hospitalization)
  Sender: FDA-Public Use
  Company Number: PT-ROCHE-791718

PATIENT
  Sex: Female
  Weight: 48 kg

DRUGS (5)
  1. PEGINTERFERON ALFA-2A [Suspect]
     Indication: HEPATITIS C
     Dosage: DOSE:80
     Route: 058
     Dates: start: 20110408
  2. CITALOPRAM HYDROBROMIDE [Concomitant]
     Indication: DEPRESSION
     Dosage: FRQUENCY REPORTED:ID
     Dates: end: 20110303
  3. NORVIR [Concomitant]
     Dosage: DOSE:100
     Route: 048
  4. RIBAVIRIN [Suspect]
     Indication: HEPATITIS C
     Route: 048
     Dates: start: 20110408
  5. REYATAZ [Concomitant]
     Dosage: DOSE:300
     Route: 048

REACTIONS (1)
  - RENAL FAILURE [None]
